FAERS Safety Report 8511585-8 (Version None)
Quarter: 2012Q3

REPORT INFORMATION
  Report Type: 
  Country: None (occurrence: None)
  Receive Date: 20120716
  Receipt Date: 20120710
  Transmission Date: 20120928
  Serious: Yes (Other)
  Sender: FDA-Public Use
  Company Number: PHHY2012BR060257

PATIENT
  Sex: Female
  Weight: 61 kg

DRUGS (7)
  1. FORMOTEROL FUMARATE [Suspect]
     Indication: HYPERSENSITIVITY
     Dosage: 1 DF, BID
  2. CLONAZEPAM [Concomitant]
     Dosage: 1 DF, UNK
  3. DRAMIN B-6 [Concomitant]
     Dosage: 1 DF, PRN
  4. OMNARIS [Suspect]
     Route: 045
  5. TIBOLONE [Concomitant]
     Dosage: 1 DF, DAILY
  6. CITALOPRAM HYDROBROMIDE [Concomitant]
     Dosage: 1 DF, AT NIGHT
  7. DONAREM RETARD [Concomitant]
     Dosage: 1 DF, AT NIGHT

REACTIONS (4)
  - GASTROINTESTINAL DISORDER [None]
  - COUGH [None]
  - CONFUSIONAL STATE [None]
  - DYSPNOEA [None]
